FAERS Safety Report 15686238 (Version 2)
Quarter: 2019Q1

REPORT INFORMATION
  Report Type: Spontaneous
  Country: CA (occurrence: CA)
  Receive Date: 20181204
  Receipt Date: 20190308
  Transmission Date: 20190417
  Serious: Yes (Life-Threatening, Hospitalization, Other)
  Sender: FDA-Public Use
  Company Number: CA-JNJFOC-20181132476

PATIENT
  Sex: Male
  Weight: 96 kg

DRUGS (2)
  1. TREMFYA [Suspect]
     Active Substance: GUSELKUMAB
     Indication: PSORIASIS
     Route: 058
  2. CHAMPIX [Concomitant]
     Active Substance: VARENICLINE TARTRATE

REACTIONS (9)
  - Cough [Recovered/Resolved]
  - Speech disorder [Recovered/Resolved]
  - Basilar artery thrombosis [Recovered/Resolved]
  - Vertebral artery dissection [Recovered/Resolved]
  - Neck pain [Recovered/Resolved]
  - Vertigo [Recovered/Resolved]
  - Diplopia [Recovered/Resolved]
  - Ischaemic stroke [Recovered/Resolved]
  - Vomiting [Recovered/Resolved]
